FAERS Safety Report 4516837-4 (Version None)
Quarter: 2004Q4

REPORT INFORMATION
  Report Type: 
  Country: None (occurrence: None)
  Receive Date: 20041202
  Receipt Date: 20040831
  Transmission Date: 20050328
  Serious: Yes (Other)
  Sender: FDA-Public Use
  Company Number: BE-GLAXOSMITHKLINE-B0344322A

PATIENT
  Age: 41 Year
  Sex: Female
  Weight: 63 kg

DRUGS (4)
  1. LAMICTAL [Suspect]
     Indication: BIPOLAR DISORDER
     Dosage: 25MG PER DAY
     Route: 065
     Dates: start: 20040803, end: 20040813
  2. SEROQUEL [Concomitant]
     Indication: BIPOLAR DISORDER
     Dosage: 200MG UNKNOWN
     Route: 048
     Dates: start: 20040401
  3. LITHIUM [Concomitant]
     Indication: BIPOLAR DISORDER
     Dosage: 400MG UNKNOWN
     Route: 048
     Dates: start: 20020101
  4. EFFEXOR [Concomitant]
     Indication: BIPOLAR DISORDER
     Dosage: 75MG UNKNOWN
     Route: 048
     Dates: start: 20040701

REACTIONS (5)
  - ANAPHYLACTIC REACTION [None]
  - HYPERSENSITIVITY [None]
  - LYMPHADENOPATHY [None]
  - PYREXIA [None]
  - URTICARIA [None]
